FAERS Safety Report 5548286-4 (Version None)
Quarter: 2007Q4

REPORT INFORMATION
  Report Type: 
  Country: None (occurrence: None)
  Receive Date: 20071206
  Receipt Date: 20071129
  Transmission Date: 20080405
  Serious: Yes (Death)
  Sender: FDA-Public Use
  Company Number: 2007AL005119

PATIENT
  Age: 23 Year
  Sex: Male
  Weight: 106 kg

DRUGS (9)
  1. TEMAZEPAM CAPSULES, 30 MG (PUREPAC) (TEMAZEPA CAPSULES, 30 MG (PUREPAC [Suspect]
     Dosage: 20 MG
     Dates: start: 20051203, end: 20051230
  2. FENTANYL TRANSDERMAL SYSTEM [Suspect]
     Indication: CROHN'S DISEASE
     Dosage: 50 MCG; TDER
     Route: 062
     Dates: start: 20051225, end: 20051230
  3. PIRITON [Concomitant]
  4. CYCLIZINE [Concomitant]
  5. DIAZEPAM [Concomitant]
  6. ORAMORPH SR [Concomitant]
  7. PREDNISOLONE [Concomitant]
  8. TRAMADOL HCL [Concomitant]
  9. ACETAMINOPHEN [Concomitant]

REACTIONS (3)
  - DIZZINESS [None]
  - HYPERSENSITIVITY [None]
  - PNEUMONIA [None]
